FAERS Safety Report 23528660 (Version 6)
Quarter: 2024Q2

REPORT INFORMATION
  Report Type: Spontaneous
  Country: JP (occurrence: JP)
  Receive Date: 20240215
  Receipt Date: 20240419
  Transmission Date: 20240715
  Serious: Yes (Life-Threatening, Hospitalization, Other)
  Sender: FDA-Public Use
  Company Number: JP-002147023-NVSJ2023JP017197

PATIENT
  Age: 53 Year
  Sex: Female
  Weight: 38 kg

DRUGS (9)
  1. COSENTYX [Suspect]
     Active Substance: SECUKINUMAB
     Indication: Psoriatic arthropathy
     Dosage: 300 MG, QW
     Route: 058
     Dates: start: 20231115, end: 20231206
  2. COSENTYX [Suspect]
     Active Substance: SECUKINUMAB
     Indication: Psoriasis
  3. CELECOXIB [Concomitant]
     Active Substance: CELECOXIB
     Indication: Psoriatic arthropathy
     Dosage: UNK
     Route: 048
  4. PREGABALIN [Concomitant]
     Active Substance: PREGABALIN
     Indication: Product used for unknown indication
     Dosage: UNK
     Route: 048
  5. MOBIC [Concomitant]
     Active Substance: MELOXICAM
     Indication: Product used for unknown indication
     Dosage: UNK
     Route: 048
  6. METHYLCOBALAMIN [Concomitant]
     Active Substance: METHYLCOBALAMIN
     Indication: Product used for unknown indication
     Dosage: UNK
     Route: 048
  7. BIFIDOBACTERIUM SPP. [Concomitant]
     Active Substance: BIFIDOBACTERIUM SPP.
     Indication: Product used for unknown indication
     Dosage: UNK
     Route: 048
  8. TIQUIZIUM BROMIDE [Concomitant]
     Active Substance: TIQUIZIUM BROMIDE
     Indication: Product used for unknown indication
     Dosage: UNK
     Route: 048
  9. ALENDRONATE [Concomitant]
     Active Substance: ALENDRONATE SODIUM
     Indication: Product used for unknown indication
     Dosage: UNK
     Route: 048

REACTIONS (18)
  - Sepsis [Recovered/Resolved]
  - Bacillus test positive [Unknown]
  - Blood pressure systolic decreased [Recovered/Resolved]
  - Enteritis infectious [Recovered/Resolved]
  - Diarrhoea [Recovered/Resolved]
  - Dehydration [Recovered/Resolved]
  - Chills [Recovered/Resolved]
  - Blood creatinine increased [Unknown]
  - Haemoglobin decreased [Unknown]
  - Malaise [Recovered/Resolved]
  - Back pain [Unknown]
  - Pain in extremity [Unknown]
  - Hypotension [Recovered/Resolved]
  - Drug eruption [Unknown]
  - Urinary tract infection [Unknown]
  - Pyrexia [Not Recovered/Not Resolved]
  - White blood cell count increased [Unknown]
  - Chromaturia [Not Recovered/Not Resolved]

NARRATIVE: CASE EVENT DATE: 20231122
